FAERS Safety Report 13913183 (Version 1)
Quarter: 2017Q3

REPORT INFORMATION
  Report Type: Spontaneous
  Country: US (occurrence: US)
  Receive Date: 20170828
  Receipt Date: 20170828
  Transmission Date: 20171127
  Serious: No
  Sender: FDA-Public Use
  Company Number: US-ROCHE-1123943

PATIENT
  Sex: Male
  Weight: 41.6 kg

DRUGS (1)
  1. NUTROPIN [Suspect]
     Active Substance: SOMATROPIN
     Indication: CHRONIC KIDNEY DISEASE
     Route: 065

REACTIONS (3)
  - Blood albumin decreased [Unknown]
  - Oedema [Unknown]
  - Growth retardation [Unknown]
